FAERS Safety Report 5428251-8 (Version None)
Quarter: 2007Q3

REPORT INFORMATION
  Report Type: 
  Country: None (occurrence: None)
  Receive Date: 20070828
  Receipt Date: 20070817
  Transmission Date: 20080115
  Serious: Yes (Other)
  Sender: FDA-Public Use
  Company Number: US-PFIZER INC-2007069550

PATIENT
  Sex: Female
  Weight: 77.272 kg

DRUGS (7)
  1. LYRICA [Suspect]
     Indication: NEUROPATHY PERIPHERAL
     Route: 048
     Dates: start: 20070613, end: 20070731
  2. DETROL LA [Interacting]
     Indication: URINARY INCONTINENCE
  3. XANAX [Interacting]
     Indication: ANXIETY
  4. VERELAN [Concomitant]
     Dosage: DAILY DOSE:180MG
  5. PREVACID [Concomitant]
     Dosage: DAILY DOSE:30MG
  6. MONTELUKAST SODIUM [Concomitant]
     Dosage: DAILY DOSE:10MG
  7. VYTORIN [Concomitant]
     Dosage: TEXT:10/20MG PER DAY

REACTIONS (2)
  - DRUG INTERACTION [None]
  - FALL [None]
